FAERS Safety Report 10561761 (Version 2)
Quarter: 2014Q4

REPORT INFORMATION
  Report Type: Spontaneous
  Country: BE (occurrence: BE)
  Receive Date: 20141103
  Receipt Date: 20141103
  Transmission Date: 20150529
  Serious: Yes (Other)
  Sender: FDA-Public Use
  Company Number: BE-AMGEN-BELSP2014075336

PATIENT
  Age: 34 Year
  Sex: Female

DRUGS (2)
  1. ENBREL [Suspect]
     Active Substance: ETANERCEPT
     Indication: PSORIASIS
     Dosage: 50 MG, WEEKLY
     Route: 058
     Dates: start: 20140811, end: 20140915
  2. CORTISONE [Concomitant]
     Active Substance: CORTISONE\HYDROCORTISONE
     Dosage: UNK

REACTIONS (8)
  - Skin warm [Unknown]
  - Injection site reaction [Unknown]
  - Local reaction [Unknown]
  - Injection site erythema [Unknown]
  - Rash pruritic [Recovered/Resolved]
  - Local swelling [Unknown]
  - Tuberculosis [Unknown]
  - Erythema [Unknown]

NARRATIVE: CASE EVENT DATE: 20140825
